FAERS Safety Report 6505032-5 (Version None)
Quarter: 2009Q4

REPORT INFORMATION
  Report Type: 
  Country: None (occurrence: None)
  Receive Date: 20091218
  Receipt Date: 20091214
  Transmission Date: 20100525
  Serious: Yes (Life-Threatening)
  Sender: FDA-Public Use
  Company Number: FR-ASTRAZENECA-2009SE31716

PATIENT
  Age: 26005 Day
  Sex: Female

DRUGS (3)
  1. NAROPIN [Suspect]
     Indication: NERVE BLOCK
     Dates: start: 20091214, end: 20091214
  2. CARBOCAINE [Suspect]
     Indication: NERVE BLOCK
     Dates: start: 20091214, end: 20091214
  3. CORDARONE [Concomitant]
     Indication: ARRHYTHMIA

REACTIONS (6)
  - AGITATION [None]
  - ARRHYTHMIA [None]
  - HALLUCINATION [None]
  - LOSS OF CONSCIOUSNESS [None]
  - OXYGEN SATURATION DECREASED [None]
  - TREMOR [None]
